FAERS Safety Report 11819709 (Version 1)
Quarter: 2015Q4

REPORT INFORMATION
  Report Type: Spontaneous
  Country: US (occurrence: None)
  Receive Date: 20151209
  Receipt Date: 20151209
  Transmission Date: 20160305
  Serious: Yes (Hospitalization)
  Sender: FDA-Public Use
  Company Number: None

PATIENT
  Age: 82 Year
  Sex: Female
  Weight: 93 kg

DRUGS (22)
  1. APAP [Concomitant]
     Active Substance: ACETAMINOPHEN
  2. LOVENOX [Suspect]
     Active Substance: ENOXAPARIN SODIUM
     Indication: PRODUCT USED FOR UNKNOWN INDICATION
     Dosage: 40MG  Q24HRS  SQ?RECENT
     Route: 058
  3. LOVENOX [Suspect]
     Active Substance: ENOXAPARIN SODIUM
     Indication: FRACTURE
     Dosage: 40MG  Q24HRS  SQ?RECENT
     Route: 058
  4. VITAMIN D3 [Concomitant]
     Active Substance: CHOLECALCIFEROL
  5. DIFLUCAN [Concomitant]
     Active Substance: FLUCONAZOLE
  6. CENTRUM SILVER [Concomitant]
     Active Substance: MINERALS\VITAMINS
  7. DILAUDID [Concomitant]
     Active Substance: HYDROMORPHONE HYDROCHLORIDE
  8. ASPIRIN. [Suspect]
     Active Substance: ASPIRIN
     Indication: FRACTURE
     Dosage: CHRONIC
     Route: 048
  9. ASPIRIN. [Suspect]
     Active Substance: ASPIRIN
     Indication: PRODUCT USED FOR UNKNOWN INDICATION
     Dosage: CHRONIC
     Route: 048
  10. AMLODIPINE [Concomitant]
     Active Substance: AMLODIPINE BESYLATE
  11. COREG [Concomitant]
     Active Substance: CARVEDILOL
  12. COLACE [Concomitant]
     Active Substance: DOCUSATE SODIUM
  13. ENULOSE [Concomitant]
     Active Substance: LACTULOSE
  14. SENOKOT [Concomitant]
     Active Substance: SENNOSIDES
  15. DESYREL [Concomitant]
     Active Substance: TRAZODONE HYDROCHLORIDE
  16. CHILDRENS BENADRYL ALLERGY [Concomitant]
     Active Substance: DIPHENHYDRAMINE HYDROCHLORIDE
  17. ZOFRAN [Concomitant]
     Active Substance: ONDANSETRON HYDROCHLORIDE
  18. MAALOX+ [Concomitant]
  19. CEPASTAT [Concomitant]
     Active Substance: PHENOL
  20. DIOVAN [Concomitant]
     Active Substance: VALSARTAN
  21. OMEGA 3 [Concomitant]
     Active Substance: OMEGA-3 FATTY ACIDS
  22. MIRALAX [Concomitant]
     Active Substance: POLYETHYLENE GLYCOL 3350

REACTIONS (3)
  - Anaemia [None]
  - Diverticulum intestinal [None]
  - Rectal haemorrhage [None]

NARRATIVE: CASE EVENT DATE: 20150304
